FAERS Safety Report 23468581 (Version 1)
Quarter: 2024Q1

REPORT INFORMATION
  Report Type: Spontaneous
  Country: US (occurrence: None)
  Receive Date: 20240201
  Receipt Date: 20240201
  Transmission Date: 20240409
  Serious: Yes (Other)
  Sender: FDA-Public Use
  Company Number: None

PATIENT
  Age: 30 Year
  Sex: Male

DRUGS (4)
  1. COSENTYX [Suspect]
     Active Substance: SECUKINUMAB
     Indication: Ankylosing spondylitis
     Dosage: FREQUENCY : AS DIRECTED;?
     Route: 058
  2. COSENTYX [Suspect]
     Active Substance: SECUKINUMAB
     Dosage: FREQUENCY : AS DIRECTED;?
     Route: 058
  3. CANNABIS SATIVA SUBSP. INDICA TOP [Suspect]
     Active Substance: CANNABIS SATIVA SUBSP. INDICA TOP
  4. OMEPRAZOLE [Concomitant]

REACTIONS (4)
  - Hypertension [None]
  - Heart rate increased [None]
  - Therapy interrupted [None]
  - Substance use [None]

NARRATIVE: CASE EVENT DATE: 20240123
